FAERS Safety Report 8764093 (Version 2)
Quarter: 2012Q4

REPORT INFORMATION
  Report Type: 
  Country: NO (occurrence: NO)
  Receive Date: 20120831
  Receipt Date: 20121204
  Transmission Date: 20130627
  Serious: Yes (Life-Threatening, Hospitalization)
  Sender: FDA-Public Use
  Company Number: NO-PFIZER INC-2012211968

PATIENT
  Age: 70 Year
  Sex: Female

DRUGS (1)
  1. SUNITINIB MALATE [Suspect]
     Indication: METASTATIC RENAL CELL CARCINOMA
     Dosage: 37.5 mg, UNK

REACTIONS (3)
  - Jaundice [Recovered/Resolved]
  - International normalised ratio increased [Recovered/Resolved]
  - Hepatic failure [Recovered/Resolved]
